FAERS Safety Report 21087204 (Version 2)
Quarter: 2022Q3

REPORT INFORMATION
  Report Type: Spontaneous
  Country: JP (occurrence: JP)
  Receive Date: 20220715
  Receipt Date: 20220805
  Transmission Date: 20221027
  Serious: Yes (Other)
  Sender: FDA-Public Use
  Company Number: JP-TAKEDA-2022TJP064753

PATIENT
  Age: 57 Year
  Sex: Male

DRUGS (2)
  1. ALUNBRIG [Suspect]
     Active Substance: BRIGATINIB
     Indication: Lung adenocarcinoma
     Dosage: 180 MILLIGRAM, QD
     Route: 048
     Dates: start: 2022
  2. ALUNBRIG [Suspect]
     Active Substance: BRIGATINIB
     Dosage: UNK
     Route: 048

REACTIONS (7)
  - Lung adenocarcinoma [Unknown]
  - Disease progression [Unknown]
  - Diarrhoea [Recovered/Resolved]
  - Aspartate aminotransferase increased [Recovered/Resolved]
  - Alanine aminotransferase increased [Recovered/Resolved]
  - Blood creatinine increased [Recovered/Resolved]
  - Blood creatine phosphokinase increased [Recovering/Resolving]
